FAERS Safety Report 8905518 (Version 3)
Quarter: 2013Q4

REPORT INFORMATION
  Report Type: Spontaneous
  Country: FR (occurrence: FR)
  Receive Date: 20121109
  Receipt Date: 20131204
  Transmission Date: 20140711
  Serious: Yes (Hospitalization)
  Sender: FDA-Public Use
  Company Number: FR-VERTEX PHARMACEUTICAL INC.-2012-024370

PATIENT
  Age: 66 Year
  Sex: Female
  Weight: 55 kg

DRUGS (9)
  1. INCIVO [Suspect]
     Indication: HEPATITIS C
     Dosage: DOSAGE FORM: TABLET
     Route: 048
     Dates: start: 20120907, end: 20121026
  2. PEGINTERFERON ALFA-2A [Suspect]
     Indication: HEPATITIS C
     Dosage: DOSAGE FORM: INJECTION
     Route: 058
     Dates: start: 20120907, end: 20121019
  3. RIBAVIRIN [Suspect]
     Indication: HEPATITIS C
     Dosage: DOSAGE FORM: UNSPECIFIED
     Route: 048
     Dates: start: 20120907, end: 20121026
  4. DEXERYL [Concomitant]
     Indication: PROPHYLAXIS
     Route: 061
     Dates: start: 20120907, end: 20121026
  5. DIPROSONE [Concomitant]
     Indication: RASH
     Route: 061
     Dates: start: 20120917, end: 20121026
  6. POLARAMIN [Concomitant]
     Indication: RASH
     Route: 048
     Dates: start: 20120917, end: 20121026
  7. MOTILIUM [Concomitant]
     Indication: VOMITING
     Dosage: DOSAGE FORM: UNSPECIFIED
     Route: 048
     Dates: start: 20121003, end: 20121026
  8. ZYRTEC [Concomitant]
     Indication: RASH
     Dosage: DOSAGE FORM: UNSPECIFIED
     Route: 048
     Dates: start: 20120917, end: 20121026
  9. PRIMPERAN [Concomitant]
     Indication: VOMITING
     Dosage: DOSAGE FORM: UNSPECIFIED
     Route: 065
     Dates: start: 20121022, end: 20121026

REACTIONS (1)
  - Pancytopenia [Recovered/Resolved]
